FAERS Safety Report 5291233-3 (Version None)
Quarter: 2007Q2

REPORT INFORMATION
  Report Type: 
  Country: None (occurrence: None)
  Receive Date: 20070409
  Receipt Date: 20070326
  Transmission Date: 20071010
  Serious: Yes (Death, Other)
  Sender: FDA-Public Use
  Company Number: US-PFIZER INC-2006062470

PATIENT
  Sex: Male
  Weight: 83.5 kg

DRUGS (1)
  1. BEXTRA [Suspect]
     Indication: ARTHRITIS
     Dates: start: 20020929, end: 20030507

REACTIONS (2)
  - MYOCARDIAL INFARCTION [None]
  - PELVIC FRACTURE [None]
